FAERS Safety Report 24209292 (Version 2)
Quarter: 2024Q3

REPORT INFORMATION
  Report Type: Spontaneous
  Country: TR (occurrence: TR)
  Receive Date: 20240814
  Receipt Date: 20240821
  Transmission Date: 20241017
  Serious: Yes (Hospitalization, Other)
  Sender: RANBAXY
  Company Number: TR-SUN PHARMACEUTICAL INDUSTRIES LTD-2024R1-462077

PATIENT
  Age: 28 Year
  Sex: Male

DRUGS (5)
  1. ENOXAPARIN SODIUM [Suspect]
     Active Substance: ENOXAPARIN SODIUM
     Indication: Atrioventricular block
     Dosage: 0.6 MILLIGRAM
     Route: 065
  2. PROPAFENONE [Suspect]
     Active Substance: PROPAFENONE
     Indication: Arrhythmia
     Dosage: 600 MILLIGRAM
     Route: 048
  3. AMIODARONE [Suspect]
     Active Substance: AMIODARONE
     Indication: Arrhythmia
     Dosage: 300 MILLIGRAM
     Route: 042
  4. AMIODARONE [Suspect]
     Active Substance: AMIODARONE
     Dosage: 1200 MILLIGRAM
     Route: 042
  5. DILTIAZEM [Suspect]
     Active Substance: DILTIAZEM
     Indication: Atrioventricular block
     Dosage: 1 AMP
     Route: 042

REACTIONS (1)
  - Condition aggravated [Unknown]
